FAERS Safety Report 7968662-X (Version None)
Quarter: 2011Q4

REPORT INFORMATION
  Report Type: 
  Country: None (occurrence: None)
  Receive Date: 20111209
  Receipt Date: 20111205
  Transmission Date: 20120403
  Serious: Yes (Other)
  Sender: FDA-Public Use
  Company Number: US-GLAXOSMITHKLINE-A0957379A

PATIENT
  Age: 64 Year
  Sex: Female

DRUGS (3)
  1. LAMICTAL [Suspect]
     Indication: BIPOLAR DISORDER
     Dosage: 25MG PER DAY
     Route: 048
     Dates: start: 20060101
  2. FLOVENT [Concomitant]
  3. SEREVENT [Concomitant]

REACTIONS (8)
  - GASTRIC DISORDER [None]
  - DIZZINESS [None]
  - SKIN EXFOLIATION [None]
  - BALANCE DISORDER [None]
  - NAUSEA [None]
  - SKIN ATROPHY [None]
  - FATIGUE [None]
  - ALOPECIA [None]
